FAERS Safety Report 6825308-1 (Version None)
Quarter: 2010Q3

REPORT INFORMATION
  Report Type: 
  Country: None (occurrence: None)
  Receive Date: 20100708
  Receipt Date: 20061223
  Transmission Date: 20110219
  Serious: No
  Sender: FDA-Public Use
  Company Number: US-PFIZER INC-2007001387

PATIENT
  Sex: Female
  Weight: 56.7 kg

DRUGS (4)
  1. CHANTIX [Suspect]
     Indication: SMOKING CESSATION THERAPY
     Dates: start: 20061201
  2. GENERAL NUTRIENTS/MINERALS/VITAMINS [Suspect]
  3. LIPITOR [Concomitant]
  4. FOSAMAX [Concomitant]

REACTIONS (2)
  - NAUSEA [None]
  - VOMITING [None]
